FAERS Safety Report 13870059 (Version 3)
Quarter: 2017Q4

REPORT INFORMATION
  Report Type: Report from Study
  Country: US (occurrence: US)
  Receive Date: 20170815
  Receipt Date: 20171010
  Transmission Date: 20180320
  Serious: Yes (Other)
  Sender: FDA-Public Use
  Company Number: PHEH2017US025274

PATIENT
  Sex: Female
  Weight: 69.39 kg

DRUGS (3)
  1. ASPIRIN. [Concomitant]
     Active Substance: ASPIRIN
     Indication: PRODUCT USED FOR UNKNOWN INDICATION
     Dosage: UNK
     Route: 065
  2. COSENTYX [Suspect]
     Active Substance: SECUKINUMAB
     Indication: PSORIASIS
     Dosage: 300 MG, QMO (EVERY 4 WEEKS)
     Route: 065
     Dates: start: 20150602
  3. OTEZLA [Concomitant]
     Active Substance: APREMILAST
     Indication: PSORIASIS
     Dosage: 30 MG, UNK
     Route: 065
     Dates: start: 20151113

REACTIONS (5)
  - Carotid artery disease [Unknown]
  - Vertebral artery stenosis [Not Recovered/Not Resolved]
  - Coronary artery disease [Unknown]
  - Peripheral arterial occlusive disease [Unknown]
  - Pulmonary mass [Unknown]

NARRATIVE: CASE EVENT DATE: 201705
